FAERS Safety Report 6545342-9 (Version None)
Quarter: 2010Q1

REPORT INFORMATION
  Report Type: 
  Country: None (occurrence: None)
  Receive Date: 20100121
  Receipt Date: 20100113
  Transmission Date: 20100710
  Serious: Yes (Other)
  Sender: FDA-Public Use
  Company Number: US-SANOFI-AVENTIS-2010SA002035

PATIENT
  Sex: Female

DRUGS (6)
  1. OPTICLICK [Suspect]
  2. LANTUS [Suspect]
     Dosage: DOSAGE- 75 UNITS AND 65 UNITS DAILY
     Route: 058
  3. LANTUS [Suspect]
     Route: 058
  4. PLAVIX [Suspect]
     Route: 065
  5. NOVOLOG [Concomitant]
  6. TRICOR [Concomitant]

REACTIONS (6)
  - AMNESIA [None]
  - CATARACT [None]
  - CEREBROVASCULAR ACCIDENT [None]
  - CORONARY ARTERY OCCLUSION [None]
  - INJECTION SITE HAEMATOMA [None]
  - VISUAL IMPAIRMENT [None]
